FAERS Safety Report 14078221 (Version 1)
Quarter: 2017Q4

REPORT INFORMATION
  Report Type: Spontaneous
  Country: US (occurrence: US)
  Receive Date: 20171012
  Receipt Date: 20171012
  Transmission Date: 20180321
  Serious: No
  Sender: FDA-Public Use
  Company Number: US-MYLANLABS-2017M1019023

PATIENT
  Sex: Female

DRUGS (1)
  1. AMIODARONE HYDROCHLORIDE. [Suspect]
     Active Substance: AMIODARONE HYDROCHLORIDE
     Indication: ATRIAL FIBRILLATION
     Dosage: 20 ML, QH
     Route: 042
     Dates: start: 20170324, end: 20170324

REACTIONS (1)
  - Injection site extravasation [Recovering/Resolving]

NARRATIVE: CASE EVENT DATE: 20170324
